FAERS Safety Report 9775128 (Version 3)
Quarter: 2014Q2

REPORT INFORMATION
  Report Type: Spontaneous
  Country: SI (occurrence: SI)
  Receive Date: 20131220
  Receipt Date: 20140409
  Transmission Date: 20141212
  Serious: Yes (Death, Hospitalization)
  Sender: FDA-Public Use
  Company Number: SI-ACTELION-A-CH2013-92745

PATIENT
  Age: 21 Year
  Sex: Female

DRUGS (2)
  1. TRACLEER [Suspect]
     Indication: PULMONARY ARTERIAL HYPERTENSION
     Dosage: 125 MG, BID
     Route: 048
  2. TRACLEER [Suspect]
     Dosage: 62.5 MG, BID
     Route: 048
     Dates: start: 201308

REACTIONS (8)
  - Cardiac failure [Fatal]
  - Haemoglobin decreased [Unknown]
  - Leukopenia [Unknown]
  - C-reactive protein increased [Unknown]
  - Cough [Unknown]
  - Hypothyroidism [Unknown]
  - Pericardial effusion [Unknown]
  - Concomitant disease aggravated [Unknown]
